FAERS Safety Report 15348313 (Version 1)
Quarter: 2018Q3

REPORT INFORMATION
  Report Type: Report from Study
  Country: CO (occurrence: CO)
  Receive Date: 20180904
  Receipt Date: 20180904
  Transmission Date: 20181010
  Serious: Yes (Hospitalization)
  Sender: FDA-Public Use
  Company Number: CO-JNJFOC-20180806107

PATIENT
  Sex: Male

DRUGS (4)
  1. DARZALEX [Suspect]
     Active Substance: DARATUMUMAB
     Indication: PLASMA CELL MYELOMA
     Route: 042
     Dates: end: 201802
  2. DARZALEX [Suspect]
     Active Substance: DARATUMUMAB
     Indication: PLASMA CELL MYELOMA
     Route: 042
     Dates: start: 20180727
  3. DARZALEX [Suspect]
     Active Substance: DARATUMUMAB
     Indication: PLASMA CELL MYELOMA
     Route: 042
     Dates: start: 20180803
  4. DARZALEX [Suspect]
     Active Substance: DARATUMUMAB
     Indication: PLASMA CELL MYELOMA
     Route: 042
     Dates: start: 20180701

REACTIONS (10)
  - Somnolence [Recovering/Resolving]
  - Loss of personal independence in daily activities [Unknown]
  - Laryngeal oedema [Recovering/Resolving]
  - General physical health deterioration [Recovering/Resolving]
  - Gait inability [Unknown]
  - Eating disorder [Recovering/Resolving]
  - Tremor [Unknown]
  - Haemoglobin decreased [Recovering/Resolving]
  - Infusion related reaction [Recovering/Resolving]
  - Immune system disorder [Unknown]

NARRATIVE: CASE EVENT DATE: 201807
